FAERS Safety Report 9879459 (Version 1)
Quarter: 2014Q1

REPORT INFORMATION
  Report Type: Report from Study
  Country: US (occurrence: US)
  Receive Date: 20140206
  Receipt Date: 20140206
  Transmission Date: 20141002
  Serious: Yes (Hospitalization)
  Sender: FDA-Public Use
  Company Number: US-ABBVIE-14P-163-1195115-00

PATIENT
  Age: 20 Year
  Sex: Male

DRUGS (3)
  1. HUMIRA [Suspect]
     Indication: CROHN^S DISEASE
     Route: 058
     Dates: start: 201303, end: 201304
  2. HUMIRA [Suspect]
     Dates: start: 20130924
  3. MERCAPTOPURINE [Concomitant]
     Indication: CROHN^S DISEASE

REACTIONS (4)
  - Small intestinal obstruction [Unknown]
  - Intestinal stenosis [Unknown]
  - Treatment noncompliance [Recovered/Resolved]
  - Crohn^s disease [Unknown]
